FAERS Safety Report 20993591 (Version 1)
Quarter: 2022Q2

REPORT INFORMATION
  Report Type: Spontaneous
  Country: US (occurrence: None)
  Receive Date: 20220621
  Receipt Date: 20220621
  Transmission Date: 20220721
  Serious: Yes (Disabling, Other)
  Sender: FDA-Public Use
  Company Number: None

PATIENT
  Age: 71 Year
  Sex: Male
  Weight: 76.5 kg

DRUGS (1)
  1. METFORMIN [Suspect]
     Active Substance: METFORMIN HYDROCHLORIDE
     Indication: Blood glucose increased
     Dosage: FREQUENCY : TWICE A DAY;?
     Route: 048

REACTIONS (8)
  - Vomiting [None]
  - Diarrhoea [None]
  - Flatulence [None]
  - Gastrooesophageal reflux disease [None]
  - Dysphonia [None]
  - Headache [None]
  - Neck pain [None]
  - Dizziness [None]

NARRATIVE: CASE EVENT DATE: 20220618
